FAERS Safety Report 8587018 (Version 3)
Quarter: 2012Q4

REPORT INFORMATION
  Report Type: Report from Study
  Country: US (occurrence: US)
  Receive Date: 20120530
  Receipt Date: 20120914
  Transmission Date: 20130627
  Serious: Yes (Hospitalization, Other)
  Sender: FDA-Public Use
  Company Number: US-ABBOTT-12P-163-0938282-00

PATIENT
  Age: 27 Year
  Sex: Female
  Weight: 54.48 kg

DRUGS (22)
  1. HUMIRA 40 MG/ 0.8 ML PRE-FILLED SYRINGE [Suspect]
     Indication: COLITIS ULCERATIVE
     Dosage: Loading dose
     Dates: start: 20120326, end: 20120326
  2. HUMIRA 40 MG/ 0.8 ML PRE-FILLED SYRINGE [Suspect]
     Dosage: Loading dose
     Dates: start: 20120410, end: 20120410
  3. HUMIRA 40 MG/ 0.8 ML PRE-FILLED SYRINGE [Suspect]
     Dates: start: 20120424, end: 201207
  4. ALLEGRA [Concomitant]
     Indication: SEASONAL ALLERGY
  5. FOLIC ACID [Concomitant]
     Indication: PRODUCT USED FOR UNKNOWN INDICATION
  6. ALBUTEROL/PROVENTIL [Concomitant]
     Indication: WHEEZING
     Dosage: 2 puffs Q6 HR PRN
  7. ACETAMINOPHEN [Concomitant]
     Indication: ABDOMINAL PAIN
     Dosage: 1 TAB Q4HR PRN
  8. FLONASE [Concomitant]
     Indication: PRODUCT USED FOR UNKNOWN INDICATION
     Dosage: 2 sprays each nostril daily
     Route: 045
  9. EFFEXOR [Concomitant]
     Indication: DEPRESSION
  10. CYPROHEPTADINE [Concomitant]
     Indication: PRODUCT USED FOR UNKNOWN INDICATION
     Dosage: 1 1/2 TABS AT HS
  11. OMEPRAZOLE [Concomitant]
     Indication: PRODUCT USED FOR UNKNOWN INDICATION
     Dosage: delayed release
  12. IMITREX [Concomitant]
     Indication: MIGRAINE
     Dosage: 1 tab (may repeat every 2 hours as needed; not to exceed 200 mg daily
  13. FLEXERIL [Concomitant]
     Indication: PRODUCT USED FOR UNKNOWN INDICATION
     Dosage: 1 tab up to three times daily
  14. KLONOPIN [Concomitant]
     Indication: PRODUCT USED FOR UNKNOWN INDICATION
  15. SULFASALAZINE [Concomitant]
     Indication: PRODUCT USED FOR UNKNOWN INDICATION
     Route: 048
  16. VITAMIN B2 [Concomitant]
     Indication: PRODUCT USED FOR UNKNOWN INDICATION
     Route: 048
  17. VITAMIN D3 [Concomitant]
     Indication: PRODUCT USED FOR UNKNOWN INDICATION
     Route: 048
  18. BENTYL [Concomitant]
     Indication: PRODUCT USED FOR UNKNOWN INDICATION
  19. DEPO-PROVERA [Concomitant]
     Indication: CONTRACEPTION
  20. PRILOSEC [Concomitant]
     Indication: GASTROOESOPHAGEAL REFLUX DISEASE
  21. IRON [Concomitant]
     Indication: BLOOD IRON
  22. POTASSIUM [Concomitant]
     Indication: MINERAL SUPPLEMENTATION

REACTIONS (20)
  - Loss of consciousness [Recovered/Resolved]
  - Blood count abnormal [Unknown]
  - Incorrect product storage [Unknown]
  - Constipation [Unknown]
  - Pain [Unknown]
  - Muscle spasms [Unknown]
  - Faeces hard [Unknown]
  - Asthenia [Unknown]
  - Rectal haemorrhage [Recovered/Resolved]
  - Rectal discharge [Unknown]
  - Off label use [Recovered/Resolved]
  - Colitis ulcerative [Recovered/Resolved]
  - Pain [Recovered/Resolved]
  - Haemoglobin decreased [Unknown]
  - Liquid product physical issue [Unknown]
  - Haemorrhage [Unknown]
  - Hospitalisation [Unknown]
  - Colectomy [Unknown]
  - Ileostomy [Unknown]
  - Dehydration [Recovered/Resolved]
